FAERS Safety Report 6901659-7 (Version None)
Quarter: 2010Q3

REPORT INFORMATION
  Report Type: 
  Country: None (occurrence: None)
  Receive Date: 20100803
  Receipt Date: 20080226
  Transmission Date: 20110219
  Serious: Yes (Other)
  Sender: FDA-Public Use
  Company Number: US-PFIZER INC-2008019054

PATIENT

DRUGS (2)
  1. LYRICA [Suspect]
  2. MORPHINE SULFATE [Concomitant]

REACTIONS (1)
  - DELIRIUM [None]
